FAERS Safety Report 11497701 (Version 1)
Quarter: 2015Q3

REPORT INFORMATION
  Report Type: Spontaneous
  Country: US (occurrence: US)
  Receive Date: 20150911
  Receipt Date: 20150911
  Transmission Date: 20151125
  Serious: Yes (Other)
  Sender: FDA-Public Use
  Company Number: US-ELI_LILLY_AND_COMPANY-US201509001321

PATIENT
  Sex: Female

DRUGS (1)
  1. CYMBALTA [Suspect]
     Active Substance: DULOXETINE HYDROCHLORIDE
     Indication: PRODUCT USED FOR UNKNOWN INDICATION
     Dosage: 1 DF, UNKNOWN
     Route: 065

REACTIONS (9)
  - Feeling abnormal [Unknown]
  - Dissociation [Unknown]
  - Paraesthesia [Unknown]
  - Disturbance in attention [Unknown]
  - Anxiety [Unknown]
  - Depression [Unknown]
  - Withdrawal syndrome [Unknown]
  - Crying [Unknown]
  - Nausea [Unknown]
